FAERS Safety Report 7293221-4 (Version None)
Quarter: 2011Q1

REPORT INFORMATION
  Report Type: 
  Country: None (occurrence: None)
  Receive Date: 20110215
  Receipt Date: 20110201
  Transmission Date: 20110831
  Serious: Yes (Hospitalization)
  Sender: FDA-Public Use
  Company Number: US-JNJCH-2011003332

PATIENT
  Age: 3 Year
  Sex: Male
  Weight: 11.2 kg

DRUGS (1)
  1. ACETYLSALICYLIC ACID [Suspect]
     Indication: ACCIDENTAL EXPOSURE
     Dosage: TEXT:15 OR LESS FIVE GRAIN TABLETS
     Route: 048

REACTIONS (4)
  - TONSILLAR HYPERTROPHY [None]
  - ACCIDENTAL EXPOSURE [None]
  - TOXICITY TO VARIOUS AGENTS [None]
  - OVERDOSE [None]
